FAERS Safety Report 4501680-2 (Version None)
Quarter: 2004Q4

REPORT INFORMATION
  Report Type: 
  Country: None (occurrence: None)
  Receive Date: 20041116
  Receipt Date: 20041104
  Transmission Date: 20050328
  Serious: Yes (Hospitalization)
  Sender: FDA-Public Use
  Company Number: JP-JNJFOC-20040506906

PATIENT
  Sex: Male
  Weight: 35 kg

DRUGS (16)
  1. REMICADE [Suspect]
     Route: 041
  2. REMICADE [Suspect]
     Route: 041
  3. REMICADE [Suspect]
     Route: 041
  4. REMICADE [Suspect]
     Dosage: THIS WAS THE DATE OF THE SECOND ADMINISTRATION.
     Route: 041
  5. REMICADE [Suspect]
     Indication: RHEUMATOID ARTHRITIS
     Dosage: THIS WAS THE DATE OF THE FIRST ADMINISTRATION.
     Route: 041
  6. METHOTREXATE [Concomitant]
     Dosage: THE PATIENT'S FIRST ADMINISTRATION OF METHOTREXATE BEGAN IN 1990.
     Route: 065
  7. ADRENOCORTICAL HORMONE [Concomitant]
     Route: 065
  8. PREDONINE [Concomitant]
     Indication: RHEUMATOID ARTHRITIS
     Route: 049
  9. RHEUMATREX [Concomitant]
     Route: 049
  10. VOLTAREN-XR [Concomitant]
     Indication: RHEUMATOID ARTHRITIS
     Route: 049
  11. LEUCOVORIN [Concomitant]
     Route: 049
  12. LANSOPRAZOLE [Concomitant]
     Route: 049
  13. ULCERLMIN [Concomitant]
     Route: 049
  14. ISCOTIN [Concomitant]
     Route: 049
  15. BONALON [Concomitant]
     Indication: OSTEOPOROSIS
     Route: 049
  16. PROGRAF [Concomitant]
     Route: 049

REACTIONS (7)
  - ARTHRALGIA [None]
  - BLOOD CHLORIDE INCREASED [None]
  - BLOOD PRESSURE INCREASED [None]
  - BLOOD SODIUM INCREASED [None]
  - HEADACHE [None]
  - PALPITATIONS [None]
  - PYREXIA [None]
